FAERS Safety Report 25980789 (Version 2)
Quarter: 2025Q4

REPORT INFORMATION
  Report Type: Spontaneous
  Country: US (occurrence: US)
  Receive Date: 20251030
  Receipt Date: 20251112
  Transmission Date: 20260117
  Serious: No
  Sender: BIOGEN
  Company Number: US-BIOGEN-2088253

PATIENT
  Age: 52 Year
  Sex: Female

DRUGS (4)
  1. VUMERITY [Suspect]
     Active Substance: DIROXIMEL FUMARATE
     Indication: Multiple sclerosis
  2. VUMERITY [Suspect]
     Active Substance: DIROXIMEL FUMARATE
  3. CORTIZONE CREAM [Concomitant]
     Indication: Injection site erythema
  4. CORTIZONE CREAM [Concomitant]
     Indication: Injection site inflammation

REACTIONS (2)
  - Drug ineffective [Recovered/Resolved]
  - Rosacea [Unknown]
